FAERS Safety Report 14949071 (Version 1)
Quarter: 2018Q2

REPORT INFORMATION
  Report Type: Spontaneous
  Country: US (occurrence: US)
  Receive Date: 20180529
  Receipt Date: 20180529
  Transmission Date: 20180711
  Serious: No
  Sender: FDA-Public Use
  Company Number: US-SA-2018SA134588

PATIENT
  Sex: Male

DRUGS (1)
  1. AUBAGIO [Suspect]
     Active Substance: TERIFLUNOMIDE
     Dosage: 14 MG,QD
     Route: 048
     Dates: start: 20171211

REACTIONS (6)
  - Herpes zoster [Unknown]
  - Vision blurred [Unknown]
  - Dizziness [Unknown]
  - Drug dose omission [Unknown]
  - Depression [Unknown]
  - Fatigue [Unknown]
